FAERS Safety Report 24685744 (Version 1)
Quarter: 2024Q4

REPORT INFORMATION
  Report Type: Spontaneous
  Country: US (occurrence: None)
  Receive Date: 20241128
  Receipt Date: 20241128
  Transmission Date: 20250115
  Serious: No
  Sender: Public
  Company Number: None

PATIENT
  Sex: Male
  Weight: 43.8 kg

DRUGS (5)
  1. CALASPARGASE PEGOL [Suspect]
     Active Substance: CALASPARGASE PEGOL
     Indication: Therapy cessation
     Dosage: OTHER QUANTITY : 3200UNIT;?
     Dates: end: 20241107
  2. DEXAMETHASONE [Suspect]
     Active Substance: DEXAMETHASONE
     Dates: end: 20241110
  3. DOXORUBICIN HYDROCHLORIDE [Suspect]
     Active Substance: DOXORUBICIN HYDROCHLORIDE
     Dates: end: 20241104
  4. METHOTREXATE [Suspect]
     Active Substance: METHOTREXATE
     Indication: Intrathecal injection
     Dates: end: 20241105
  5. VINCRISTINE SULFATE [Suspect]
     Active Substance: VINCRISTINE SULFATE
     Dates: end: 20241104

REACTIONS (9)
  - Polydipsia [None]
  - Pollakiuria [None]
  - Blood glucose increased [None]
  - Pancreatitis [None]
  - Urine ketone body present [None]
  - Diabetic ketoacidosis [None]
  - Febrile neutropenia [None]
  - Gait inability [None]
  - Pain [None]

NARRATIVE: CASE EVENT DATE: 20241110
